FAERS Safety Report 6903110-X (Version None)
Quarter: 2010Q3

REPORT INFORMATION
  Report Type: 
  Country: None (occurrence: None)
  Receive Date: 20100803
  Receipt Date: 20080609
  Transmission Date: 20110219
  Serious: Yes (Other)
  Sender: FDA-Public Use
  Company Number: US-PFIZER INC-2008034679

PATIENT
  Sex: Female
  Weight: 70 kg

DRUGS (1)
  1. LYRICA [Suspect]
     Indication: FIBROMYALGIA
     Route: 048
     Dates: start: 20080413, end: 20080414

REACTIONS (9)
  - DISTURBANCE IN ATTENTION [None]
  - DIZZINESS [None]
  - FATIGUE [None]
  - HALLUCINATION [None]
  - IMPAIRED DRIVING ABILITY [None]
  - INSOMNIA [None]
  - MALAISE [None]
  - VISION BLURRED [None]
  - VISUAL IMPAIRMENT [None]
